FAERS Safety Report 9922133 (Version 1)
Quarter: 2014Q1

REPORT INFORMATION
  Report Type: Report from Study
  Country: BR (occurrence: BR)
  Receive Date: 20140225
  Receipt Date: 20140225
  Transmission Date: 20141002
  Serious: Yes (Other)
  Sender: FDA-Public Use
  Company Number: PHHY2014BR021943

PATIENT
  Sex: Female
  Weight: 89 kg

DRUGS (7)
  1. DIOVAN HCT [Suspect]
     Indication: HYPERTENSION
     Dosage: 1 DF (320MG VALS/12.5MG HCT), IN THE MORNING
     Route: 048
     Dates: start: 201001, end: 20110727
  2. DIOVAN HCT [Suspect]
     Dosage: 1 DF (160MG VALS/12.5MG HCT), IN THE MORNING
     Route: 048
  3. DIOVAN HCT [Suspect]
     Dosage: 0.5 DF (160MG VALS/12.5MG HCT), UNK
     Route: 048
  4. DIOVAN HCT [Suspect]
     Dosage: 1 DF (80MG VALS/12.5MG HCT), UNK
     Route: 048
     Dates: start: 201401
  5. LEVOID [Concomitant]
     Indication: HYPOTHYROIDISM
     Dosage: 112 UG, UNK
     Dates: start: 2009
  6. MULTI-VIT [Concomitant]
     Indication: PROPHYLAXIS
     Dosage: UNK UKN, UNK
  7. B COMPLEX [Concomitant]
     Indication: PROPHYLAXIS
     Dosage: UNK UKN, UNK

REACTIONS (8)
  - Breast mass [Recovering/Resolving]
  - Nephrolithiasis [Recovering/Resolving]
  - Obesity [Recovering/Resolving]
  - Vitamin D deficiency [Recovering/Resolving]
  - Vitamin A deficiency [Recovering/Resolving]
  - Arrhythmia [Recovering/Resolving]
  - Stress [Unknown]
  - Wrong technique in drug usage process [Unknown]
